FAERS Safety Report 9543120 (Version 1)
Quarter: 2013Q3

REPORT INFORMATION
  Report Type: Spontaneous
  Country: US (occurrence: US)
  Receive Date: 20130923
  Receipt Date: 20130923
  Transmission Date: 20140515
  Serious: No
  Sender: FDA-Public Use
  Company Number: US-PURDUE-USA-2012-0086818

PATIENT
  Age: 35 Year
  Sex: Female

DRUGS (2)
  1. DILAUDID TABLET [Suspect]
     Indication: PRODUCT USED FOR UNKNOWN INDICATION
     Dosage: UNK
  2. OXYCODONE HCL CR TABLETS (SIMILAR TO NDA 20-553) [Concomitant]
     Indication: CROHN^S DISEASE
     Dosage: 5/325MG 2 TABS EVERY 4-6 HOURS PRN

REACTIONS (1)
  - Drug hypersensitivity [Unknown]
